FAERS Safety Report 23243361 (Version 1)
Quarter: 2023Q4

REPORT INFORMATION
  Report Type: Report from Study
  Country: SG (occurrence: None)
  Receive Date: 20231130
  Receipt Date: 20231130
  Transmission Date: 20240109
  Serious: Yes (Hospitalization)
  Sender: FDA-Public Use
  Company Number: SG-ROCHE-3450293

PATIENT
  Age: 61 Year
  Sex: Male

DRUGS (5)
  1. ATEZOLIZUMAB [Suspect]
     Active Substance: ATEZOLIZUMAB
     Indication: Colorectal cancer
     Route: 041
     Dates: start: 20231009, end: 20231009
  2. ATEZOLIZUMAB [Suspect]
     Active Substance: ATEZOLIZUMAB
     Route: 041
     Dates: start: 20231107, end: 20231107
  3. ZANZALINTINIB [Suspect]
     Active Substance: ZANZALINTINIB
     Indication: Colorectal cancer
     Route: 048
     Dates: start: 20231009, end: 20231022
  4. ZANZALINTINIB [Suspect]
     Active Substance: ZANZALINTINIB
     Route: 048
     Dates: start: 20231107, end: 20231108
  5. ZANZALINTINIB [Suspect]
     Active Substance: ZANZALINTINIB
     Route: 048
     Dates: start: 20231114, end: 20231117

REACTIONS (5)
  - Rash [Recovered/Resolved]
  - Mucosal inflammation [Recovered/Resolved]
  - Pyrexia [Recovered/Resolved]
  - Thrombocytopenia [Recovered/Resolved]
  - Hyponatraemia [Recovered/Resolved]

NARRATIVE: CASE EVENT DATE: 20231020
